FAERS Safety Report 21786928 (Version 1)
Quarter: 2022Q4

REPORT INFORMATION
  Report Type: Report from Study
  Country: US (occurrence: US)
  Receive Date: 20221228
  Receipt Date: 20221228
  Transmission Date: 20230113
  Serious: No
  Sender: FDA-Public Use
  Company Number: US-ABBVIE-21K-163-4113575-00

PATIENT
  Age: 54 Year
  Sex: Female

DRUGS (3)
  1. HUMIRA [Suspect]
     Active Substance: ADALIMUMAB
     Indication: Uveitis
     Dosage: TIME INTERVAL: 1 TOTAL: ON DAY 1
     Route: 058
     Dates: start: 20211006, end: 20211006
  2. HUMIRA [Suspect]
     Active Substance: ADALIMUMAB
     Dosage: TIME INTERVAL: 1 TOTAL: ON DAY 8
     Route: 058
     Dates: start: 20211013, end: 20211013
  3. MODERNA COVID-19 VACCINE [Suspect]
     Active Substance: ELASOMERAN
     Indication: COVID-19 immunisation
     Dosage: TIME INTERVAL: 1 TOTAL: ONCE
     Route: 030

REACTIONS (12)
  - Vitreous floaters [Recovering/Resolving]
  - Device issue [Unknown]
  - Photophobia [Not Recovered/Not Resolved]
  - Incorrect dose administered [Unknown]
  - Sinus disorder [Unknown]
  - Vision blurred [Recovered/Resolved]
  - Drug ineffective [Unknown]
  - Injection site pain [Unknown]
  - Uveitis [Recovered/Resolved]
  - Erythema [Not Recovered/Not Resolved]
  - Eye pain [Recovering/Resolving]
  - Vision blurred [Recovering/Resolving]

NARRATIVE: CASE EVENT DATE: 20221001
